FAERS Safety Report 5688295-8 (Version None)
Quarter: 2008Q1

REPORT INFORMATION
  Report Type: 
  Country: None (occurrence: None)
  Receive Date: 20080331
  Receipt Date: 20080331
  Transmission Date: 20080703
  Serious: Yes (Hospitalization)
  Sender: FDA-Public Use
  Company Number: None

PATIENT
  Age: 75 Year
  Sex: Male
  Weight: 67.9 kg

DRUGS (1)
  1. HEPARIN [Suspect]
     Indication: DEEP VEIN THROMBOSIS
     Dosage: 5000UNITS TID SQ
     Route: 058
     Dates: start: 20080227, end: 20080310

REACTIONS (3)
  - COLECTOMY [None]
  - PULMONARY EMBOLISM [None]
  - THROMBOCYTOPENIA [None]
